FAERS Safety Report 19251209 (Version 1)
Quarter: 2021Q2

REPORT INFORMATION
  Report Type: Spontaneous
  Country: FR (occurrence: FR)
  Receive Date: 20210512
  Receipt Date: 20210512
  Transmission Date: 20210717
  Serious: Yes (Hospitalization, Other)
  Sender: FDA-Public Use
  Company Number: FR-MYLANLABS-2021M1027466

PATIENT
  Age: 55 Year
  Sex: Female

DRUGS (2)
  1. VERAPAMIL [Suspect]
     Active Substance: VERAPAMIL HYDROCHLORIDE
     Indication: SUPRAVENTRICULAR TACHYCARDIA
     Dosage: 240 MILLIGRAM
  2. CARTEOL                            /00422901/ [Interacting]
     Active Substance: ATENOLOL
     Indication: OPEN ANGLE GLAUCOMA
     Dosage: 1 DOSAGE FORM, QD, ONE DROP PER DAY IN EACH EYE FOR A MONTH AND A HALF
     Route: 047

REACTIONS (3)
  - Drug interaction [Unknown]
  - Malaise [Unknown]
  - Cardiogenic shock [Recovered/Resolved]
